FAERS Safety Report 7235325-8 (Version None)
Quarter: 2011Q1

REPORT INFORMATION
  Report Type: 
  Country: None (occurrence: None)
  Receive Date: 20110120
  Receipt Date: 20110111
  Transmission Date: 20110831
  Serious: Yes (Death)
  Sender: FDA-Public Use
  Company Number: US-JNJFOC-20101002281

PATIENT
  Sex: Female
  Weight: 77.11 kg

DRUGS (5)
  1. DURAGESIC-50 [Suspect]
     Indication: PAIN
     Route: 062
  2. XANAX [Concomitant]
  3. SOMA [Concomitant]
  4. VIVELLE-DOT [Concomitant]
  5. TRAMADOL HCL [Concomitant]

REACTIONS (3)
  - TOXICITY TO VARIOUS AGENTS [None]
  - DRUG DOSE OMISSION [None]
  - DRUG INEFFECTIVE [None]
